FAERS Safety Report 8589902-2 (Version None)
Quarter: 2012Q3

REPORT INFORMATION
  Report Type: 
  Country: None (occurrence: None)
  Receive Date: 20120813
  Receipt Date: 20120808
  Transmission Date: 20120928
  Serious: Yes (Other)
  Sender: FDA-Public Use
  Company Number: PHHY2011CA70041

PATIENT
  Sex: Female

DRUGS (1)
  1. GILENYA [Suspect]
     Indication: RELAPSING-REMITTING MULTIPLE SCLEROSIS
     Dosage: 0.5 MG, DAILY
     Route: 048
     Dates: start: 20110727

REACTIONS (6)
  - HEADACHE [None]
  - ABDOMINAL PAIN UPPER [None]
  - UTERINE LEIOMYOMA [None]
  - ANAEMIA VITAMIN B12 DEFICIENCY [None]
  - NAUSEA [None]
  - HYPOAESTHESIA [None]
